FAERS Safety Report 15979803 (Version 1)
Quarter: 2019Q1

REPORT INFORMATION
  Report Type: Spontaneous
  Country: US (occurrence: US)
  Receive Date: 20190219
  Receipt Date: 20190219
  Transmission Date: 20190418
  Serious: No
  Sender: FDA-Public Use
  Company Number: US-MYLANLABS-2019M1010578

PATIENT
  Sex: Female

DRUGS (1)
  1. SOMA [Suspect]
     Active Substance: CARISOPRODOL
     Indication: PRODUCT USED FOR UNKNOWN INDICATION
     Dosage: UNK

REACTIONS (1)
  - Eating disorder [Unknown]
